FAERS Safety Report 19919354 (Version 3)
Quarter: 2022Q1

REPORT INFORMATION
  Report Type: Report from Study
  Country: CN (occurrence: CN)
  Receive Date: 20211004
  Receipt Date: 20220311
  Transmission Date: 20220423
  Serious: Yes (Hospitalization)
  Sender: FDA-Public Use
  Company Number: CN-BAXTER-2020BAX023248

PATIENT
  Sex: Female
  Weight: 60 kg

DRUGS (21)
  1. CYCLOPHOSPHAMIDE [Suspect]
     Active Substance: CYCLOPHOSPHAMIDE
     Indication: Triple negative breast cancer
     Dosage: DATE OF LAST DOSE PRIOR TO ADVERSE EVENT 04/APR/2020, 978 MG
     Route: 042
     Dates: start: 20200106
  2. ATEZOLIZUMAB [Suspect]
     Active Substance: ATEZOLIZUMAB
     Indication: Triple negative breast cancer
     Route: 042
     Dates: start: 20191012
  3. ATEZOLIZUMAB [Suspect]
     Active Substance: ATEZOLIZUMAB
     Dosage: LAST DOSE PRIOR TO SAE
     Route: 042
     Dates: start: 20200404, end: 20200404
  4. EPIRUBICIN [Suspect]
     Active Substance: EPIRUBICIN
     Indication: Triple negative breast cancer
     Dosage: MOST RECENT DOSE IF EPIRUBICIN: 04/APR/2020, 146.7 MG
     Route: 042
     Dates: start: 20200106
  5. EPIRUBICIN [Suspect]
     Active Substance: EPIRUBICIN
     Dosage: LAST DOSE PRIOR TO SAE, DOSE: 146.7 MG
     Route: 042
     Dates: start: 20200404, end: 20200404
  6. PACLITAXEL [Suspect]
     Active Substance: PACLITAXEL
     Indication: Triple negative breast cancer
     Dosage: MOST RECENT DOSE OF PACLITAXEL PRIOR TO AE ONSET: 28/DEC/2019 (130.4 MG)
     Route: 042
     Dates: start: 20191012
  7. PACLITAXEL [Suspect]
     Active Substance: PACLITAXEL
     Dosage: LAST DOSE PRIOR TO SAE, DOSE: 103.4 MG
     Route: 042
     Dates: start: 20191228, end: 20191228
  8. FILGRASTIM [Suspect]
     Active Substance: FILGRASTIM
     Indication: Triple negative breast cancer
     Dosage: INJECTION, SOLUTION
     Route: 058
     Dates: start: 20200113, end: 20200113
  9. FILGRASTIM [Suspect]
     Active Substance: FILGRASTIM
     Dosage: INJECTION, SOLUTION
     Route: 058
     Dates: start: 20200119, end: 20200120
  10. FILGRASTIM [Suspect]
     Active Substance: FILGRASTIM
     Dosage: INJECTION, SOLUTION
     Route: 058
     Dates: start: 20200403, end: 20200406
  11. THROMBOPOIETIN [Concomitant]
     Active Substance: THROMBOPOIETIN
     Indication: Product used for unknown indication
     Route: 065
     Dates: start: 20200415, end: 20200422
  12. LEVOFLOXACIN LACTATE [Concomitant]
     Active Substance: LEVOFLOXACIN LACTATE
     Indication: Product used for unknown indication
     Dosage: LEVOFLOXACIN LACTATE;SODIUM CHLORIDE
     Route: 065
     Dates: start: 20200427, end: 20200508
  13. CLINDAMYCIN HYDROCHLORIDE [Concomitant]
     Active Substance: CLINDAMYCIN HYDROCHLORIDE
     Indication: Product used for unknown indication
     Route: 065
     Dates: start: 20200427, end: 20200508
  14. SODIUM CHLORIDE [Concomitant]
     Active Substance: SODIUM CHLORIDE
     Indication: Product used for unknown indication
     Route: 042
     Dates: start: 20200411, end: 20200414
  15. SODIUM CHLORIDE [Concomitant]
     Active Substance: SODIUM CHLORIDE
     Indication: Medication dilution
     Dosage: LEVOFLOXACIN LACTATE;SODIUM CHLORIDE
     Route: 065
     Dates: start: 20200427, end: 20200508
  16. MONTMORILLONITE [Concomitant]
     Active Substance: MONTMORILLONITE
     Indication: Product used for unknown indication
     Dosage: DOSAGE FORM: POWDER
     Route: 065
     Dates: start: 20200412, end: 20200412
  17. DEXAMETHASONE [Concomitant]
     Active Substance: DEXAMETHASONE
     Indication: Product used for unknown indication
     Route: 065
     Dates: start: 20200412, end: 20200412
  18. ERYTHROPOIETIN [Concomitant]
     Active Substance: ERYTHROPOIETIN
     Indication: Product used for unknown indication
     Route: 065
     Dates: start: 20200417, end: 20200423
  19. PROMETHAZINE HYDROCHLORIDE [Concomitant]
     Active Substance: PROMETHAZINE HYDROCHLORIDE
     Indication: Product used for unknown indication
     Route: 065
     Dates: start: 20200415, end: 20200415
  20. FUSIDIC ACID [Concomitant]
     Active Substance: FUSIDIC ACID
     Indication: Product used for unknown indication
     Route: 065
     Dates: start: 20200417, end: 20200417
  21. ALPRAZOLAM [Concomitant]
     Active Substance: ALPRAZOLAM
     Indication: Product used for unknown indication
     Dosage: DOSAGE FORM: TABLET
     Route: 065
     Dates: start: 20200419

REACTIONS (2)
  - Anal abscess [Recovered/Resolved with Sequelae]
  - Febrile neutropenia [Recovered/Resolved]

NARRATIVE: CASE EVENT DATE: 20200410
